FAERS Safety Report 24351513 (Version 1)
Quarter: 2024Q3

REPORT INFORMATION
  Report Type: Spontaneous
  Country: US (occurrence: None)
  Receive Date: 20240921
  Receipt Date: 20240921
  Transmission Date: 20241017
  Serious: Yes (Hospitalization)
  Sender: Public
  Company Number: None

PATIENT
  Age: 44 Year
  Sex: Female
  Weight: 72 kg

DRUGS (2)
  1. CEFUROXIME AXETIL [Suspect]
     Active Substance: CEFUROXIME AXETIL
     Indication: Sinusitis
     Dosage: 1 TABLET EVERY 12 HOURS ORAL
     Route: 048
  2. EFFEXOR [Concomitant]
     Active Substance: VENLAFAXINE HYDROCHLORIDE

REACTIONS (6)
  - Pain [None]
  - Drug hypersensitivity [None]
  - Amnesia [None]
  - Fatigue [None]
  - Malaise [None]
  - Suspected product quality issue [None]

NARRATIVE: CASE EVENT DATE: 20240911
